FAERS Safety Report 15429642 (Version 4)
Quarter: 2018Q4

REPORT INFORMATION
  Report Type: Spontaneous
  Country: US (occurrence: US)
  Receive Date: 20180926
  Receipt Date: 20181114
  Transmission Date: 20190204
  Serious: Yes (Other)
  Sender: FDA-Public Use
  Company Number: US-PFIZER INC-2018376612

PATIENT
  Age: 9 Year
  Sex: Male
  Weight: 30.84 kg

DRUGS (4)
  1. METHYLPHENIDATE. [Concomitant]
     Active Substance: METHYLPHENIDATE
     Dosage: UNK
  2. SERTRALINE HCL [Suspect]
     Active Substance: SERTRALINE HYDROCHLORIDE
     Indication: ANXIETY
     Dosage: 2 ML, 1X/DAY (ONCE AT NIGHT)
  3. CLONIDINE. [Concomitant]
     Active Substance: CLONIDINE
     Dosage: UNK
  4. RISPERIDONE. [Concomitant]
     Active Substance: RISPERIDONE
     Dosage: UNK

REACTIONS (5)
  - Poor quality product administered [Unknown]
  - Product quality issue [Unknown]
  - Autism spectrum disorder [Unknown]
  - Emotional disorder of childhood [Unknown]
  - Product use issue [Unknown]
